FAERS Safety Report 5513035-2 (Version None)
Quarter: 2007Q4

REPORT INFORMATION
  Report Type: 
  Country: None (occurrence: None)
  Receive Date: 20071112
  Receipt Date: 20071105
  Transmission Date: 20080405
  Serious: Yes (Other)
  Sender: FDA-Public Use
  Company Number: US-ASTRAZENECA-2007UW25792

PATIENT

DRUGS (1)
  1. PULMICORT FLEXHALER [Suspect]

REACTIONS (8)
  - ABDOMINAL PAIN UPPER [None]
  - ANOREXIA [None]
  - DYSPNOEA [None]
  - LETHARGY [None]
  - NAIL DISCOLOURATION [None]
  - NECK PAIN [None]
  - PEAK EXPIRATORY FLOW RATE DECREASED [None]
  - PYREXIA [None]
